FAERS Safety Report 4981616-0 (Version None)
Quarter: 2006Q2

REPORT INFORMATION
  Report Type: 
  Country: None (occurrence: None)
  Receive Date: 20060425
  Receipt Date: 20060413
  Transmission Date: 20061013
  Serious: Yes (Hospitalization)
  Sender: FDA-Public Use
  Company Number: PHBS2006NL05459

PATIENT
  Age: 64 Year
  Sex: Female

DRUGS (4)
  1. AREDIA [Suspect]
     Indication: METASTASES TO BONE
     Dosage: 90 MG EVERY 4 WEEKS
     Route: 042
     Dates: start: 20040101, end: 20060101
  2. FEMARA [Suspect]
     Indication: BREAST CANCER STAGE IV
     Dosage: 2.5 MG/DAY
     Route: 048
     Dates: start: 20040101, end: 20060120
  3. TAMOXIFEN CITRATE [Concomitant]
     Dosage: 40 MG, QD
  4. SINTROM MITIS [Concomitant]
     Dosage: UNK, QD

REACTIONS (2)
  - DYSPNOEA [None]
  - PULMONARY HYPERTENSION [None]
